FAERS Safety Report 8830969 (Version 4)
Quarter: 2013Q2

REPORT INFORMATION
  Report Type: Spontaneous
  Country: US (occurrence: US)
  Receive Date: 20121009
  Receipt Date: 20130619
  Transmission Date: 20140414
  Serious: No
  Sender: FDA-Public Use
  Company Number: US-009507513-1208USA012268

PATIENT
  Sex: Female

DRUGS (6)
  1. PEG-INTRON [Suspect]
     Indication: HEPATITIS C
     Dosage: 0.5CC, REDIPEN
     Dates: start: 20120706
  2. PEG-INTRON [Suspect]
     Dosage: 0.4CC, REDIPEN
  3. REBETOL [Suspect]
     Indication: HEPATITIS C
     Dosage: 1200MG
     Route: 048
     Dates: start: 20120706
  4. REBETOL [Suspect]
     Dosage: 1000MG
     Route: 048
  5. REBETOL [Suspect]
     Dosage: 800 MG, QD
     Route: 048
  6. VICTRELIS [Suspect]
     Indication: HEPATITIS C
     Dosage: UNK
     Route: 048
     Dates: start: 20120803

REACTIONS (31)
  - Hypoaesthesia [Unknown]
  - Feeling cold [Unknown]
  - Musculoskeletal stiffness [Unknown]
  - Hypertension [Unknown]
  - Hypertension [Unknown]
  - Injection site reaction [Unknown]
  - Fatigue [Unknown]
  - Dizziness [Unknown]
  - Weight decreased [Unknown]
  - Chest discomfort [Unknown]
  - Dyspnoea [Unknown]
  - Neutrophil count decreased [Unknown]
  - Fatigue [Unknown]
  - Dizziness [Unknown]
  - Dyspnoea [Unknown]
  - Chest discomfort [Unknown]
  - Diarrhoea [Unknown]
  - Nausea [Unknown]
  - Epistaxis [Unknown]
  - Rash [Unknown]
  - Eye pain [Unknown]
  - Arthralgia [Unknown]
  - Ventricular extrasystoles [Unknown]
  - Visual impairment [Unknown]
  - Dysgeusia [Unknown]
  - Tremor [Unknown]
  - Platelet count decreased [Unknown]
  - Anaemia [Recovering/Resolving]
  - Haemoglobin decreased [Unknown]
  - Neutrophil count decreased [Unknown]
  - Arthralgia [Unknown]
